FAERS Safety Report 6406520-2 (Version None)
Quarter: 2009Q4

REPORT INFORMATION
  Report Type: 
  Country: None (occurrence: None)
  Receive Date: 20091014
  Receipt Date: 20091005
  Transmission Date: 20100525
  Serious: Yes (Death)
  Sender: FDA-Public Use
  Company Number: 2009US003705

PATIENT
  Age: 61 Year
  Sex: Male

DRUGS (7)
  1. PROGRAF [Suspect]
     Indication: GRAFT VERSUS HOST DISEASE
  2. VORICONAZOLE [Suspect]
     Indication: INFECTION PROPHYLAXIS
  3. ACYCLOVIR [Concomitant]
  4. TRIMETHOPRIM [Concomitant]
  5. SULFAMETHOXAZOLE [Concomitant]
  6. MYCOPHENOLATE MOFETIL [Concomitant]
  7. PREDNISOLONE [Concomitant]

REACTIONS (13)
  - ALANINE AMINOTRANSFERASE INCREASED [None]
  - BLOOD ALKALINE PHOSPHATASE INCREASED [None]
  - FUSARIUM INFECTION [None]
  - HAEMOGLOBIN DECREASED [None]
  - HEPATIC LESION [None]
  - LUNG DISORDER [None]
  - OFF LABEL USE [None]
  - PLATELET COUNT DECREASED [None]
  - RASH PAPULAR [None]
  - RENAL DISORDER [None]
  - SKIN LACERATION [None]
  - SKIN NODULE [None]
  - SYSTEMIC MYCOSIS [None]
